FAERS Safety Report 14073375 (Version 4)
Quarter: 2019Q4

REPORT INFORMATION
  Report Type: Report from Study
  Country: GB (occurrence: GB)
  Receive Date: 20171011
  Receipt Date: 20191227
  Transmission Date: 20200122
  Serious: Yes (Hospitalization)
  Sender: FDA-Public Use
  Company Number: GB-ASTRAZENECA-2017SF01424

PATIENT
  Age: 11329 Day
  Sex: Female

DRUGS (8)
  1. OLAPARIB. [Suspect]
     Active Substance: OLAPARIB
     Indication: BREAST CANCER
     Route: 048
     Dates: start: 20170903
  2. CARBOPLATIN. [Suspect]
     Active Substance: CARBOPLATIN
     Indication: BREAST CANCER
     Dosage: 750.0MG ONCE/SINGLE ADMINISTRATION
     Route: 042
     Dates: start: 20170901
  3. RANITIDINE. [Concomitant]
     Active Substance: RANITIDINE
     Dosage: 50MG
     Route: 042
     Dates: start: 20170901, end: 20170929
  4. DEXAMETHAZONE [Concomitant]
     Active Substance: DEXAMETHASONE
     Dosage: 10 MG
     Route: 042
     Dates: start: 20170901, end: 20170929
  5. PACLITAXEL. [Suspect]
     Active Substance: PACLITAXEL
     Indication: BREAST CANCER
     Dosage: 150.0MG ONCE/SINGLE ADMINISTRATION
     Route: 042
     Dates: start: 20170901
  6. METOCLOPRAMIDE. [Concomitant]
     Active Substance: METOCLOPRAMIDE
     Dosage: 10 MG TDS PRN
     Route: 048
     Dates: start: 20170906
  7. G-CSF [Suspect]
     Active Substance: GRANULOCYTE COLONY-STIMULATING FACTOR NOS
     Indication: BREAST CANCER
     Route: 065
  8. CHLORPHENAMINE [Concomitant]
     Active Substance: CHLORPHENIRAMINE MALEATE
     Dosage: 10 MG
     Route: 042
     Dates: start: 20170901, end: 20170929

REACTIONS (1)
  - Deep vein thrombosis [Recovered/Resolved with Sequelae]

NARRATIVE: CASE EVENT DATE: 20171003
